FAERS Safety Report 6675245-0 (Version None)
Quarter: 2010Q2

REPORT INFORMATION
  Report Type: 
  Country: None (occurrence: None)
  Receive Date: 20100409
  Receipt Date: 20100329
  Transmission Date: 20101027
  Serious: Yes (Death, Other)
  Sender: FDA-Public Use
  Company Number: DE-CUBIST-2009S1000578

PATIENT
  Age: 50 Year
  Sex: Male
  Weight: 90 kg

DRUGS (1)
  1. CUBICIN [Suspect]
     Indication: INFECTION
     Route: 042
     Dates: start: 20090101

REACTIONS (5)
  - ACUTE GRAFT VERSUS HOST DISEASE IN INTESTINE [None]
  - ACUTE GRAFT VERSUS HOST DISEASE IN LIVER [None]
  - DEVICE RELATED INFECTION [None]
  - MALIGNANT NEOPLASM PROGRESSION [None]
  - STAPHYLOCOCCAL INFECTION [None]
